FAERS Safety Report 7676610-5 (Version None)
Quarter: 2011Q3

REPORT INFORMATION
  Report Type: 
  Country: None (occurrence: None)
  Receive Date: 20110811
  Receipt Date: 20110808
  Transmission Date: 20111222
  Serious: Yes (Other)
  Sender: FDA-Public Use
  Company Number: TW-PFIZER INC-2011182371

PATIENT
  Age: 75 Year
  Sex: Male

DRUGS (1)
  1. CELECOXIB [Suspect]
     Indication: ARTHRALGIA
     Dosage: 100 MG, 2X/DAY
     Route: 048

REACTIONS (1)
  - GLOMERULONEPHRITIS MINIMAL LESION [None]
